FAERS Safety Report 17433345 (Version 1)
Quarter: 2020Q1

REPORT INFORMATION
  Report Type: Spontaneous
  Country: US (occurrence: US)
  Receive Date: 20200218
  Receipt Date: 20200218
  Transmission Date: 20200409
  Serious: Yes (Disabling, Other)
  Sender: FDA-Public Use
  Company Number: None

PATIENT
  Age: 46 Year
  Sex: Female
  Weight: 122.4 kg

DRUGS (15)
  1. PROTONIX [Concomitant]
     Active Substance: PANTOPRAZOLE SODIUM
  2. VITAMIN B12 [Concomitant]
     Active Substance: CYANOCOBALAMIN
  3. DIAMOX SEQUELS [Concomitant]
     Active Substance: ACETAZOLAMIDE
  4. STADOL SPRAY [Concomitant]
  5. ALPHA STIM [Concomitant]
  6. METFORMIN [Concomitant]
     Active Substance: METFORMIN HYDROCHLORIDE
  7. VIT D [Concomitant]
     Active Substance: VITAMIN D NOS
  8. ATENOLOL. [Concomitant]
     Active Substance: ATENOLOL
  9. HCTZ [Concomitant]
     Active Substance: HYDROCHLOROTHIAZIDE
  10. TIZANIDINE. [Concomitant]
     Active Substance: TIZANIDINE
  11. PHENERGAN [Concomitant]
     Active Substance: PROMETHAZINE HYDROCHLORIDE
  12. PAPAYA TABLETS [Concomitant]
  13. EMGALITY [Suspect]
     Active Substance: GALCANEZUMAB-GNLM
     Indication: MIGRAINE
     Dosage: ?          OTHER FREQUENCY:MONTHLY;?
     Route: 058
     Dates: start: 20191210
  14. COQ10 [Concomitant]
     Active Substance: UBIDECARENONE
  15. CEFALY [Concomitant]
     Active Substance: DEVICE

REACTIONS (6)
  - Micturition urgency [None]
  - Pollakiuria [None]
  - Anxiety [None]
  - Dysuria [None]
  - Nightmare [None]
  - Alopecia [None]

NARRATIVE: CASE EVENT DATE: 20191216
